FAERS Safety Report 8611339-8 (Version None)
Quarter: 2012Q3

REPORT INFORMATION
  Report Type: 
  Country: None (occurrence: None)
  Receive Date: 20120822
  Receipt Date: 20120816
  Transmission Date: 20120928
  Serious: Yes (Other)
  Sender: FDA-Public Use
  Company Number: US-PFIZER INC-2012193810

PATIENT
  Age: 52 Year
  Sex: Male
  Weight: 94.331 kg

DRUGS (11)
  1. IBUPROFEN [Concomitant]
     Dosage: 800 MG, UNK
  2. GABAPENTIN [Suspect]
     Indication: NEUROPATHY PERIPHERAL
     Dosage: UNK
     Dates: start: 20100101
  3. VICODIN [Suspect]
     Indication: PAIN IN EXTREMITY
     Dosage: UNK
  4. ALCOHOL [Suspect]
     Dosage: UNK
  5. NORVIR [Suspect]
     Indication: HIV INFECTION
     Dosage: UNK
     Dates: end: 20070101
  6. ISENTRESS [Suspect]
     Indication: HIV INFECTION
     Dosage: 400 MG, 2X/DAY
  7. FLOMAX [Suspect]
     Indication: PROSTATOMEGALY
     Dosage: 0.4 MG, DAILY
  8. TRAMADOL HCL [Suspect]
     Indication: MIGRAINE
     Dosage: 50 MG, UNK
  9. VICODIN [Suspect]
     Indication: BACK PAIN
  10. INTELENCE [Suspect]
     Indication: HIV INFECTION
     Dosage: 100 MG, 4X/DAY
  11. INTELENCE [Suspect]
     Dosage: 200 MG, 2X/DAY

REACTIONS (11)
  - BLOOD URINE PRESENT [None]
  - NEUROPATHY PERIPHERAL [None]
  - WRONG TECHNIQUE IN DRUG USAGE PROCESS [None]
  - HYPERSENSITIVITY [None]
  - PROSTATOMEGALY [None]
  - ERECTILE DYSFUNCTION [None]
  - SOMNOLENCE [None]
  - URINARY TRACT INFECTION [None]
  - LIP DISORDER [None]
  - DRUG INEFFECTIVE [None]
  - ABDOMINAL PAIN [None]
